FAERS Safety Report 8619623-9 (Version None)
Quarter: 2012Q3

REPORT INFORMATION
  Report Type: 
  Country: None (occurrence: None)
  Receive Date: 20120824
  Receipt Date: 20120821
  Transmission Date: 20120928
  Serious: Yes (Hospitalization)
  Sender: FDA-Public Use
  Company Number: US-AMGEN-USASP2012053077

PATIENT
  Age: 76 Year
  Sex: Female

DRUGS (1)
  1. ENBREL [Suspect]
     Indication: MUSCULOSKELETAL PAIN
     Dosage: 50 MUL/ML, QWK
     Route: 058
     Dates: start: 20120701, end: 20120701

REACTIONS (1)
  - BLOOD GLUCOSE DECREASED [None]
